FAERS Safety Report 7343874-7 (Version None)
Quarter: 2011Q1

REPORT INFORMATION
  Report Type: 
  Country: None (occurrence: None)
  Receive Date: 20110310
  Receipt Date: 20110303
  Transmission Date: 20110831
  Serious: Yes (Hospitalization)
  Sender: FDA-Public Use
  Company Number: CH-ROCHE-763585

PATIENT
  Age: 50 Year
  Sex: Male

DRUGS (7)
  1. ROCEPHIN [Concomitant]
     Route: 041
     Dates: start: 20101201, end: 20101201
  2. POLYMYXIN [Concomitant]
     Dates: start: 20101201, end: 20101201
  3. SIMULECT [Concomitant]
     Route: 041
     Dates: start: 20101201
  4. CELLCEPT [Suspect]
     Indication: LIVER TRANSPLANT
     Route: 048
     Dates: start: 20101216, end: 20101223
  5. SANDIMMUNE [Suspect]
     Indication: LIVER TRANSPLANT
     Route: 048
     Dates: start: 20101225, end: 20110105
  6. PROGRAF [Suspect]
     Indication: LIVER TRANSPLANT
     Route: 048
     Dates: start: 20101216, end: 20101225
  7. METRONIDAZOLE [Suspect]
     Route: 041
     Dates: start: 20101216, end: 20101225

REACTIONS (1)
  - ENCEPHALOPATHY [None]
